FAERS Safety Report 8118970-7 (Version None)
Quarter: 2012Q1

REPORT INFORMATION
  Report Type: 
  Country: None (occurrence: None)
  Receive Date: 20120207
  Receipt Date: 20120203
  Transmission Date: 20120608
  Serious: Yes (Hospitalization)
  Sender: FDA-Public Use
  Company Number: 2012SP000374

PATIENT
  Age: 49 Year
  Sex: Male
  Weight: 68 kg

DRUGS (4)
  1. LATUDA [Suspect]
     Route: 048
     Dates: start: 20120101, end: 20120101
  2. BENZTROPINE MESYLATE [Concomitant]
     Indication: EXTRAPYRAMIDAL DISORDER
     Dates: start: 20110701
  3. LATUDA [Suspect]
     Indication: PSYCHOTIC DISORDER
     Route: 048
     Dates: start: 20111025, end: 20120101
  4. CLONAZEPAM [Concomitant]
     Indication: ANXIETY
     Dates: start: 20110701

REACTIONS (3)
  - SCHIZOAFFECTIVE DISORDER [None]
  - TREATMENT NONCOMPLIANCE [None]
  - PSYCHOTIC DISORDER [None]
